FAERS Safety Report 7286663-4 (Version None)
Quarter: 2011Q1

REPORT INFORMATION
  Report Type: 
  Country: None (occurrence: None)
  Receive Date: 20110210
  Receipt Date: 20110207
  Transmission Date: 20110831
  Serious: Yes (Other)
  Sender: FDA-Public Use
  Company Number: JP-PFIZER INC-2011027325

PATIENT
  Age: 80 Year
  Sex: Male

DRUGS (3)
  1. LYRICA [Suspect]
     Indication: POST HERPETIC NEURALGIA
     Dosage: 25 MG
     Route: 048
  2. LYRICA [Suspect]
     Dosage: 150 MG
  3. ACONITE [Concomitant]

REACTIONS (2)
  - OEDEMA PERIPHERAL [None]
  - PLEURAL EFFUSION [None]
